FAERS Safety Report 14973554 (Version 1)
Quarter: 2018Q2

REPORT INFORMATION
  Report Type: Spontaneous
  Country: RS (occurrence: RS)
  Receive Date: 20180605
  Receipt Date: 20180605
  Transmission Date: 20180711
  Serious: Yes (Other)
  Sender: FDA-Public Use
  Company Number: PHHY2018RS014213

PATIENT
  Age: 58 Year
  Sex: Male

DRUGS (18)
  1. FLECAINIDE [Concomitant]
     Active Substance: FLECAINIDE
     Indication: PRODUCT USED FOR UNKNOWN INDICATION
     Dosage: 1 DF, BID
     Route: 065
     Dates: start: 20180214
  2. METOPROLOL. [Suspect]
     Active Substance: METOPROLOL
     Dosage: 23.75 MG (0.5 DF OF 47.5 MG), QD
     Route: 065
     Dates: start: 20161121
  3. DEMETRIN [Concomitant]
     Active Substance: PRAZEPAM
     Indication: PRODUCT USED FOR UNKNOWN INDICATION
     Dosage: 1 DF, QD
     Dates: start: 20160218
  4. NOLPAZA [Concomitant]
     Active Substance: PANTOPRAZOLE SODIUM
     Indication: PRODUCT USED FOR UNKNOWN INDICATION
     Dosage: 1 DF, BID
     Route: 065
     Dates: start: 20171121
  5. METOPROLOL. [Suspect]
     Active Substance: METOPROLOL
     Dosage: 47.5 MG, QD
     Route: 065
     Dates: start: 20160218
  6. CARDIOPIRIN [Suspect]
     Active Substance: ASPIRIN
     Dosage: 1 DF, QD
     Route: 065
     Dates: start: 20160818
  7. DEMETRIN [Concomitant]
     Active Substance: PRAZEPAM
     Dosage: 1 DF, QD
     Route: 065
     Dates: start: 20160818
  8. DEMETRIN [Concomitant]
     Active Substance: PRAZEPAM
     Dosage: 1 DF, QD
     Route: 065
     Dates: start: 20161121
  9. CARDIOPIRIN [Suspect]
     Active Substance: ASPIRIN
     Indication: VENTRICULAR TACHYCARDIA
     Dosage: 1 DF, QD
     Route: 065
  10. LEXILIUM [Suspect]
     Active Substance: BROMAZEPAM
     Indication: VENTRICULAR TACHYCARDIA
     Dosage: 1 DF, QD
     Route: 065
  11. NOLPAZA [Concomitant]
     Active Substance: PANTOPRAZOLE SODIUM
     Dosage: 1 DF, BID
     Route: 065
     Dates: start: 20180214
  12. METOPROLOL. [Suspect]
     Active Substance: METOPROLOL
     Indication: VENTRICULAR TACHYCARDIA
     Dosage: 95 MG, QD
     Route: 065
  13. ELIQUIS [Concomitant]
     Active Substance: APIXABAN
     Indication: PRODUCT USED FOR UNKNOWN INDICATION
     Dosage: 1 DF, BID
     Route: 065
     Dates: start: 20171121
  14. DEMETRIN [Concomitant]
     Active Substance: PRAZEPAM
     Dosage: 1 DF, QD
     Route: 065
     Dates: start: 20180214
  15. METOPROLOL. [Suspect]
     Active Substance: METOPROLOL
     Dosage: 47.5 MG, QD
     Route: 065
     Dates: start: 20180214
  16. METOPROLOL. [Suspect]
     Active Substance: METOPROLOL
     Dosage: 47.5 MG (0.5 DF), QD
     Route: 065
  17. CARDIOPIRIN [Suspect]
     Active Substance: ASPIRIN
     Dosage: 1 DF, QD
     Route: 065
     Dates: start: 20160218
  18. ELIQUIS [Concomitant]
     Active Substance: APIXABAN
     Dosage: 1 DF, BID
     Route: 065
     Dates: start: 20180214

REACTIONS (5)
  - Atrial fibrillation [Unknown]
  - Dyspnoea [Unknown]
  - Heart rate decreased [Unknown]
  - Dizziness [Unknown]
  - Fatigue [Unknown]

NARRATIVE: CASE EVENT DATE: 20180214
